FAERS Safety Report 8225436-2 (Version None)
Quarter: 2012Q1

REPORT INFORMATION
  Report Type: 
  Country: None (occurrence: None)
  Receive Date: 20120321
  Receipt Date: 20120314
  Transmission Date: 20120608
  Serious: Yes (Death, Hospitalization, Disabling, Other)
  Sender: FDA-Public Use
  Company Number: NZ-ELI_LILLY_AND_COMPANY-NZ201009002899

PATIENT
  Age: 55 Year
  Sex: Male

DRUGS (4)
  1. DILTIAZEM HCL [Concomitant]
  2. CISPLATIN [Concomitant]
     Indication: LUNG SQUAMOUS CELL CARCINOMA STAGE UNSPECIFIED
     Dosage: 150 MG, UNKNOWN
     Route: 065
  3. GEMZAR [Suspect]
     Indication: LUNG SQUAMOUS CELL CARCINOMA STAGE UNSPECIFIED
     Dosage: 2500 MG, UNKNOWN
     Route: 065
     Dates: start: 20071001, end: 20080101
  4. MORPHINE [Concomitant]

REACTIONS (6)
  - FATIGUE [None]
  - DYSPNOEA [None]
  - NEOPLASM MALIGNANT [None]
  - RADIATION MYELOPATHY [None]
  - DRUG INTERACTION [None]
  - PLEURAL EFFUSION [None]
